FAERS Safety Report 6978686-7 (Version None)
Quarter: 2010Q3

REPORT INFORMATION
  Report Type: 
  Country: None (occurrence: None)
  Receive Date: 20100913
  Receipt Date: 20100909
  Transmission Date: 20110219
  Serious: Yes (Other)
  Sender: FDA-Public Use
  Company Number: A0880509A

PATIENT
  Age: 41 Year
  Sex: Male

DRUGS (4)
  1. LAMICTAL [Suspect]
     Indication: EPILEPSY
     Dosage: 100MG TWICE PER DAY
     Route: 048
  2. KEPPRA [Concomitant]
  3. CLONAZEPAM [Concomitant]
  4. INSULIN [Concomitant]

REACTIONS (7)
  - CONVULSION [None]
  - DIARRHOEA [None]
  - DISABILITY [None]
  - DRUG INEFFECTIVE [None]
  - FALL [None]
  - VOMITING [None]
  - WEIGHT DECREASED [None]
